FAERS Safety Report 6504767-8 (Version None)
Quarter: 2009Q4

REPORT INFORMATION
  Report Type: 
  Country: None (occurrence: None)
  Receive Date: 20091215
  Receipt Date: 20091204
  Transmission Date: 20100525
  Serious: No
  Sender: FDA-Public Use
  Company Number: 2009029466

PATIENT
  Sex: Male

DRUGS (1)
  1. FENTORA [Suspect]
     Indication: ABDOMINAL PAIN UPPER
     Dosage: 200 MCG (200 MCG, 1 IN 1 AS REQUIRED),BU
     Route: 002
     Dates: start: 20090101

REACTIONS (1)
  - DRUG PRESCRIBING ERROR [None]
